FAERS Safety Report 10252092 (Version 2)
Quarter: 2014Q2

REPORT INFORMATION
  Report Type: Spontaneous
  Country: GB (occurrence: GB)
  Receive Date: 20140623
  Receipt Date: 20140623
  Transmission Date: 20141212
  Serious: Yes (Hospitalization, Other)
  Sender: FDA-Public Use
  Company Number: PHFR2014GB003945

PATIENT
  Age: 28 Year
  Sex: Male

DRUGS (5)
  1. CLOZARIL [Suspect]
     Indication: SCHIZOPHRENIA
     Dosage: UNK
     Route: 048
     Dates: start: 20100923
  2. CLOZARIL [Suspect]
     Dosage: 18 DF (18 DOSES OF 225 MG)
     Route: 048
     Dates: start: 20140601, end: 20140601
  3. CLOZARIL [Suspect]
     Dosage: UNK (UUNDER RETRITRATION)
     Route: 048
  4. CITALOPRAM [Concomitant]
     Indication: DEPRESSION
     Dosage: 10 MG, UNK
     Route: 048
     Dates: start: 20140602
  5. DIAZEPAM [Concomitant]
     Indication: ANXIETY
     Dosage: 5 MG, DAILY DOSE
     Route: 048
     Dates: start: 20140602

REACTIONS (2)
  - Intentional overdose [Recovered/Resolved]
  - Suicide attempt [Recovered/Resolved]
